FAERS Safety Report 22944017 (Version 4)
Quarter: 2023Q4

REPORT INFORMATION
  Report Type: Spontaneous
  Country: CA (occurrence: CA)
  Receive Date: 20230914
  Receipt Date: 20231130
  Transmission Date: 20240110
  Serious: Yes (Other)
  Sender: FDA-Public Use
  Company Number: CA-PFIZER INC-202201243092

PATIENT
  Age: 11 Year
  Sex: Male

DRUGS (2)
  1. ABRILADA [Suspect]
     Active Substance: ADALIMUMAB-AFZB
     Indication: Crohn^s disease
     Dosage: 160 MG WEEK 0, THEN 80 MG WEEK 2, THEN 40 MG Q2 WEEKS
     Route: 058
     Dates: start: 20221021
  2. ABRILADA [Suspect]
     Active Substance: ADALIMUMAB-AFZB
     Dosage: 160MG WEEK 0, THEN 80MG WEEK 2, THEN 40MG Q2 WEEK
     Route: 058
     Dates: start: 20230910

REACTIONS (7)
  - Migraine with aura [Not Recovered/Not Resolved]
  - Monoplegia [Not Recovered/Not Resolved]
  - Facial paralysis [Recovering/Resolving]
  - Facial paralysis [Recovering/Resolving]
  - Dysarthria [Recovering/Resolving]
  - Hypoaesthesia [Recovering/Resolving]
  - Off label use [Unknown]

NARRATIVE: CASE EVENT DATE: 20221021
